FAERS Safety Report 22149809 (Version 3)
Quarter: 2023Q2

REPORT INFORMATION
  Report Type: Spontaneous
  Country: US (occurrence: US)
  Receive Date: 20230329
  Receipt Date: 20230407
  Transmission Date: 20230721
  Serious: No
  Sender: FDA-Public Use
  Company Number: US-UNITED THERAPEUTICS-UNT-2023-007485

PATIENT
  Age: 52 Year
  Sex: Female

DRUGS (14)
  1. REMODULIN [Suspect]
     Active Substance: TREPROSTINIL
     Indication: Pulmonary arterial hypertension
     Dosage: 0.00346 ?G/KG, CONTINUING
     Route: 058
     Dates: start: 202303
  2. REMODULIN [Suspect]
     Active Substance: TREPROSTINIL
     Dosage: 0.0039 ?G/KG, CONTINUING (18 UL/HR)
     Route: 058
     Dates: start: 202303
  3. REMODULIN [Suspect]
     Active Substance: TREPROSTINIL
     Dosage: 0.00433 ?G/KG, CONTINUING
     Route: 058
     Dates: start: 202303
  4. REMODULIN [Suspect]
     Active Substance: TREPROSTINIL
     Dosage: 0.00476 ?G/KG, CONTINUING (22 UL/HR)
     Route: 058
  5. REMODULIN [Suspect]
     Active Substance: TREPROSTINIL
     Dosage: UNK UNK, CONTINUING
     Route: 058
     Dates: start: 20230308, end: 20230404
  6. LIDOCAINE [Suspect]
     Active Substance: LIDOCAINE
     Indication: Infusion site pain
     Dosage: UNK
     Route: 065
  7. BENADRYL [Suspect]
     Active Substance: DIPHENHYDRAMINE HYDROCHLORIDE
     Indication: Infusion site pain
     Dosage: UNK
     Route: 065
  8. TYLENOL WITH CODEINE [Suspect]
     Active Substance: ACETAMINOPHEN\CODEINE PHOSPHATE
     Indication: Infusion site pain
     Dosage: UNK
     Route: 065
  9. TRIAMCINOLONE ACETONIDE [Suspect]
     Active Substance: TRIAMCINOLONE ACETONIDE
     Indication: Infusion site pain
     Dosage: UNK
     Route: 065
  10. UPTRAVI [Concomitant]
     Active Substance: SELEXIPAG
     Indication: Pulmonary arterial hypertension
     Dosage: 1600 MCG, BID (1 IN 0.5 DAY)
     Route: 048
     Dates: start: 201709
  11. UPTRAVI [Concomitant]
     Active Substance: SELEXIPAG
     Dosage: 1600 MCG, BID (1 IN 0.5 DAY)
     Route: 048
  12. UPTRAVI [Concomitant]
     Active Substance: SELEXIPAG
     Dosage: 1400 MCG, BID
     Route: 048
  13. OPSUMIT [Concomitant]
     Active Substance: MACITENTAN
     Indication: Product used for unknown indication
     Dosage: UNK
     Route: 065
  14. SILDENAFIL CITRATE [Concomitant]
     Active Substance: SILDENAFIL CITRATE
     Indication: Product used for unknown indication
     Dosage: UNK
     Route: 065

REACTIONS (8)
  - Infusion site pain [Unknown]
  - Infusion site erythema [Unknown]
  - Insomnia [Unknown]
  - Loss of personal independence in daily activities [Unknown]
  - Infusion site inflammation [Unknown]
  - Therapy non-responder [Unknown]
  - Infusion site induration [Unknown]
  - Impaired quality of life [Unknown]

NARRATIVE: CASE EVENT DATE: 20230301
